FAERS Safety Report 9821438 (Version 2)
Quarter: 2014Q1

REPORT INFORMATION
  Report Type: Spontaneous
  Country: US (occurrence: US)
  Receive Date: 20140116
  Receipt Date: 20140116
  Transmission Date: 20141002
  Serious: No
  Sender: FDA-Public Use
  Company Number: US-GILEAD-2011-0035429

PATIENT
  Age: 61 Year
  Sex: Male

DRUGS (4)
  1. LETAIRIS [Suspect]
     Indication: PULMONARY HYPERTENSION
     Route: 048
     Dates: start: 20101124, end: 20110112
  2. LETAIRIS [Suspect]
     Indication: SARCOIDOSIS
  3. REVATIO [Concomitant]
  4. REMODULIN [Concomitant]

REACTIONS (5)
  - Condition aggravated [Unknown]
  - Muscular weakness [Unknown]
  - Abasia [Unknown]
  - Hypoxia [Unknown]
  - Fluid retention [Unknown]
